FAERS Safety Report 11642995 (Version 2)
Quarter: 2015Q4

REPORT INFORMATION
  Report Type: Spontaneous
  Country: TW (occurrence: TW)
  Receive Date: 20151020
  Receipt Date: 20151027
  Transmission Date: 20160304
  Serious: Yes (Hospitalization, Other)
  Sender: FDA-Public Use
  Company Number: TW-ROCHE-1647808

PATIENT
  Age: 58 Year
  Sex: Female

DRUGS (16)
  1. PREDNISOLONE. [Concomitant]
     Active Substance: PREDNISOLONE
     Indication: RHEUMATOID ARTHRITIS
     Route: 048
     Dates: start: 20150923
  2. SILYMARIN [Concomitant]
     Active Substance: MILK THISTLE
     Route: 048
     Dates: start: 20150930
  3. ETHAMBUTOL [Concomitant]
     Active Substance: ETHAMBUTOL HYDROCHLORIDE
     Indication: TUBERCULOSIS
     Route: 048
     Dates: start: 20150930, end: 20151014
  4. HYDROXYCHLOROQUINE [Concomitant]
     Active Substance: HYDROXYCHLOROQUINE
     Indication: RHEUMATOID ARTHRITIS
     Route: 048
     Dates: start: 20150923
  5. VITAMIN B16 [Concomitant]
     Route: 065
     Dates: start: 20130626, end: 20130723
  6. ULTRACET [Concomitant]
     Active Substance: ACETAMINOPHEN\TRAMADOL HYDROCHLORIDE
     Indication: RHEUMATOID ARTHRITIS
     Dosage: 1 TAB
     Route: 048
     Dates: start: 20150624
  7. VITAMIN B6 [Concomitant]
     Active Substance: PYRIDOXINE HYDROCHLORIDE
     Route: 048
     Dates: start: 20150930, end: 20151014
  8. URSOLIC ACID [Concomitant]
     Route: 048
     Dates: start: 20150714
  9. LEVOFLOXACIN. [Concomitant]
     Active Substance: LEVOFLOXACIN
     Route: 065
     Dates: start: 20130710, end: 20140304
  10. LEVOCETIRIZINE [Concomitant]
     Active Substance: LEVOCETIRIZINE
     Indication: PROPHYLAXIS
     Route: 048
     Dates: start: 20140305
  11. ACTEMRA [Suspect]
     Active Substance: TOCILIZUMAB
     Indication: RHEUMATOID ARTHRITIS
     Dosage: 8MG/KG
     Route: 042
     Dates: start: 20140110
  12. ACETYLCYSTEINE. [Concomitant]
     Active Substance: ACETYLCYSTEINE
     Indication: TUBERCULOSIS
     Dosage: 1 TAB
     Route: 048
     Dates: start: 20150930, end: 20151014
  13. ACTEMRA [Suspect]
     Active Substance: TOCILIZUMAB
     Dosage: 8MG/KG
     Route: 042
     Dates: start: 20150819
  14. CELECOXIB. [Concomitant]
     Active Substance: CELECOXIB
     Indication: RHEUMATOID ARTHRITIS
     Route: 048
     Dates: start: 20130719
  15. MOSAPRIDE [Concomitant]
     Active Substance: MOSAPRIDE
     Route: 048
     Dates: start: 20151007
  16. URSOLIC ACID [Concomitant]
     Indication: PROPHYLAXIS
     Route: 048
     Dates: start: 20151014

REACTIONS (2)
  - Pulmonary tuberculosis [Not Recovered/Not Resolved]
  - Neck mass [Recovered/Resolved]

NARRATIVE: CASE EVENT DATE: 20150917
